FAERS Safety Report 5068215-X (Version None)
Quarter: 2006Q3

REPORT INFORMATION
  Report Type: 
  Country: None (occurrence: None)
  Receive Date: 20060802
  Receipt Date: 20050606
  Transmission Date: 20061208
  Serious: Yes (Other)
  Sender: FDA-Public Use
  Company Number: US-BRISTOL-MYERS SQUIBB COMPANY-12994877

PATIENT
  Age: 63 Year
  Sex: Female
  Weight: 45 kg

DRUGS (8)
  1. COUMADIN [Suspect]
     Indication: AORTIC VALVE REPLACEMENT
     Dosage: ALTERNATES BETWEEN 7.5MG AND 10 MG EVERY OTHER DAY
     Route: 048
  2. COUMADIN [Suspect]
     Indication: MITRAL VALVE REPLACEMENT
     Dosage: ALTERNATES BETWEEN 7.5MG AND 10 MG EVERY OTHER DAY
     Route: 048
  3. COUMADIN [Suspect]
     Indication: CEREBROVASCULAR ACCIDENT
     Dosage: ALTERNATES BETWEEN 7.5MG AND 10 MG EVERY OTHER DAY
     Route: 048
  4. COUMADIN [Suspect]
     Indication: TRICUSPID VALVE REPAIR
     Dosage: ALTERNATES BETWEEN 7.5MG AND 10 MG EVERY OTHER DAY
     Route: 048
  5. COUMADIN [Suspect]
     Indication: ATRIAL FIBRILLATION
     Dosage: ALTERNATES BETWEEN 7.5MG AND 10 MG EVERY OTHER DAY
     Route: 048
  6. DIGOXIN [Suspect]
  7. CALCIUM GLUCONATE [Suspect]
  8. DEHYDROEPIANDROSTERONE [Suspect]
     Dates: end: 20050601

REACTIONS (2)
  - DIARRHOEA [None]
  - INTERNATIONAL NORMALISED RATIO FLUCTUATION [None]
